FAERS Safety Report 7209237-X (Version None)
Quarter: 2011Q1

REPORT INFORMATION
  Report Type: 
  Country: None (occurrence: None)
  Receive Date: 20110104
  Receipt Date: 20101227
  Transmission Date: 20110831
  Serious: No
  Sender: FDA-Public Use
  Company Number: A0892903A

PATIENT
  Sex: Female
  Weight: 58 kg

DRUGS (3)
  1. SUNMAX [Suspect]
     Indication: PROPHYLAXIS
     Dates: start: 20100701, end: 20100822
  2. NATELE [Suspect]
     Indication: SUPPLEMENTATION THERAPY
     Dosage: 1TAB PER DAY
     Route: 048
     Dates: start: 20100401, end: 20100901
  3. RANITIDINE [Suspect]
     Indication: DYSPEPSIA
     Route: 048
     Dates: start: 20100601, end: 20100901

REACTIONS (4)
  - PREMATURE LABOUR [None]
  - DRUG EXPOSURE DURING PREGNANCY [None]
  - LIVE BIRTH [None]
  - PRODUCT QUALITY ISSUE [None]
